FAERS Safety Report 16024061 (Version 2)
Quarter: 2019Q2

REPORT INFORMATION
  Report Type: Spontaneous
  Country: JP (occurrence: JP)
  Receive Date: 20190301
  Receipt Date: 20190405
  Transmission Date: 20190711
  Serious: Yes (Disabling, Other)
  Sender: FDA-Public Use
  Company Number: JP-ELI_LILLY_AND_COMPANY-JP201902011190

PATIENT
  Sex: Male
  Weight: 58 kg

DRUGS (10)
  1. ALPHAGAN P [Concomitant]
     Active Substance: BRIMONIDINE TARTRATE
     Indication: GLAUCOMA
     Dosage: UNK, BID
     Route: 047
  2. IRINOTECAN [Suspect]
     Active Substance: IRINOTECAN
     Indication: RECTAL ADENOCARCINOMA
     Dosage: 190 MG
     Route: 041
     Dates: start: 20181108, end: 20190110
  3. LEVOFOLINATE CALCIUM [Suspect]
     Active Substance: LEVOLEUCOVORIN CALCIUM
     Indication: RECTAL ADENOCARCINOMA
     Dosage: 320 MG
     Route: 041
     Dates: start: 20181108, end: 20190110
  4. URSODEOXYCHOLIC ACID [Concomitant]
     Active Substance: URSODIOL
     Indication: PROPHYLAXIS AGAINST DIARRHOEA
     Dosage: 100 MG, TID
     Route: 048
     Dates: end: 20190112
  5. AZORGA [Concomitant]
     Active Substance: BRINZOLAMIDE\TIMOLOL MALEATE
     Indication: GLAUCOMA
     Dosage: UNK, BID
     Route: 047
  6. CYRAMZA [Suspect]
     Active Substance: RAMUCIRUMAB
     Indication: RECTAL ADENOCARCINOMA
     Dosage: 450 MG
     Route: 041
     Dates: start: 20181108, end: 20190110
  7. SODIUM BICARBONATE. [Concomitant]
     Active Substance: SODIUM BICARBONATE
     Indication: PROPHYLAXIS AGAINST DIARRHOEA
     Dosage: 500 MG, TID
     Route: 048
     Dates: end: 20190112
  8. 5 FU [Suspect]
     Active Substance: FLUOROURACIL
     Indication: RECTAL ADENOCARCINOMA
     Dosage: UNK
     Route: 041
     Dates: start: 20181108, end: 20190112
  9. MAGMITT [Concomitant]
     Active Substance: MAGNESIUM OXIDE
     Indication: CONSTIPATION
     Dosage: 330 MG, PRN
     Route: 048
  10. XALATAN [Concomitant]
     Active Substance: LATANOPROST
     Indication: GLAUCOMA
     Dosage: UNK UNK, DAILY
     Route: 047

REACTIONS (3)
  - Hyponatraemia [Unknown]
  - Coma [Recovering/Resolving]
  - Trousseau^s syndrome [Unknown]

NARRATIVE: CASE EVENT DATE: 20190112
